FAERS Safety Report 22122739 (Version 7)
Quarter: 2023Q4

REPORT INFORMATION
  Report Type: Spontaneous
  Country: US (occurrence: US)
  Receive Date: 20230321
  Receipt Date: 20231004
  Transmission Date: 20240110
  Serious: No
  Sender: FDA-Public Use
  Company Number: US-BAUSCHBL-2023BNL002221

PATIENT
  Age: 73 Year
  Sex: Female
  Weight: 48.988 kg

DRUGS (5)
  1. VYZULTA [Suspect]
     Active Substance: LATANOPROSTENE BUNOD
     Indication: Glaucoma
     Dosage: ONE DROP IN EACH EYE ONCE A DAY. START DATE: MAY OR /JUN/2023 (3 MONTHS AGO)
     Route: 047
     Dates: start: 2023
  2. BRIMONIDINE TARTRATE [Suspect]
     Active Substance: BRIMONIDINE TARTRATE
     Indication: Glaucoma
     Dosage: 3 MONTHS AGO
     Route: 047
     Dates: start: 202305, end: 20230825
  3. ASPIRIN [Concomitant]
     Active Substance: ASPIRIN
     Indication: Blood cholesterol increased
     Dosage: THERAPY DATES 3 YEAR^S
  4. ASPIRIN [Concomitant]
     Active Substance: ASPIRIN
     Indication: Anticoagulant therapy
  5. TIMOLOL MALEATE [Concomitant]
     Active Substance: TIMOLOL MALEATE
     Indication: Glaucoma
     Dosage: SINCE 2 WEEKS
     Dates: start: 202308

REACTIONS (7)
  - Intraocular pressure increased [Unknown]
  - Burning sensation [Unknown]
  - Vision blurred [Unknown]
  - Product packaging quantity issue [Unknown]
  - Product use issue [Unknown]
  - Product dose omission issue [Unknown]
  - Product quality issue [Unknown]

NARRATIVE: CASE EVENT DATE: 20230101
